FAERS Safety Report 4716038-0 (Version None)
Quarter: 2005Q3

REPORT INFORMATION
  Report Type: 
  Country: None (occurrence: None)
  Receive Date: 20050718
  Receipt Date: 20050623
  Transmission Date: 20060218
  Serious: Yes (Other)
  Sender: FDA-Public Use
  Company Number: 200515903GDDC

PATIENT
  Age: 43 Year
  Sex: Female
  Weight: 74.5 kg

DRUGS (3)
  1. TELFAST [Suspect]
     Dosage: DOSE: UNK
  2. NEOCLARITYN [Suspect]
     Indication: SEASONAL ALLERGY
     Route: 048
     Dates: start: 20050505
  3. TRILUDAN [Concomitant]

REACTIONS (2)
  - EXTRASYSTOLES [None]
  - TACHYCARDIA [None]
